FAERS Safety Report 8427904-7 (Version None)
Quarter: 2012Q2

REPORT INFORMATION
  Report Type: 
  Country: None (occurrence: None)
  Receive Date: 20120611
  Receipt Date: 20120611
  Transmission Date: 20120825
  Serious: Yes (Hospitalization, Other)
  Sender: FDA-Public Use
  Company Number: US-ROCHE-GNE319230

PATIENT
  Sex: Male

DRUGS (13)
  1. TRAZODONE HCL [Concomitant]
     Dosage: DAILY
     Route: 048
     Dates: start: 20100902
  2. NIACIN [Concomitant]
     Dosage: DAILY
     Dates: start: 20110503
  3. LUTEIN [Concomitant]
     Dosage: DAILY
     Route: 048
     Dates: start: 20110503
  4. NIACIN [Concomitant]
     Dosage: DAILY
     Route: 048
  5. COZAAR [Concomitant]
     Indication: PRODUCT USED FOR UNKNOWN INDICATION
     Dosage: 25 MG, QD
  6. ASPIRIN [Concomitant]
     Dosage: DAILY
     Dates: start: 20101027
  7. COQ-10 [Concomitant]
     Indication: PRODUCT USED FOR UNKNOWN INDICATION
     Dosage: DAILY
     Route: 048
     Dates: start: 20110503
  8. LUCENTIS [Suspect]
     Dates: start: 20110510, end: 20120511
  9. PLAVIX [Concomitant]
     Indication: PRODUCT USED FOR UNKNOWN INDICATION
     Dosage: DAILY
     Route: 048
     Dates: start: 20100802
  10. ZOCOR [Concomitant]
     Indication: PRODUCT USED FOR UNKNOWN INDICATION
     Dosage: DAILY
     Route: 048
     Dates: start: 20100802
  11. METOPROLOL TARTRATE [Concomitant]
     Dosage: DAILY
     Route: 048
     Dates: start: 20111116
  12. FISH OIL [Concomitant]
     Route: 048
     Dates: start: 20110317
  13. LUCENTIS [Suspect]
     Indication: AGE-RELATED MACULAR DEGENERATION
     Route: 050
     Dates: start: 20090415

REACTIONS (3)
  - VITREOUS FLOATERS [None]
  - VISUAL ACUITY REDUCED [None]
  - ENDOPHTHALMITIS [None]
